FAERS Safety Report 16136884 (Version 5)
Quarter: 2020Q2

REPORT INFORMATION
  Report Type: Report from Study
  Country: None (occurrence: NL)
  Receive Date: 20190329
  Receipt Date: 20200413
  Transmission Date: 20200713
  Serious: Yes (Hospitalization, Other)
  Sender: FDA-Public Use
  Company Number: NL-ABBVIE-18S-114-2596384-00

PATIENT
  Age: 81 Year
  Sex: Female
  Weight: 56 kg

DRUGS (4)
  1. CLOZAPINE. [Concomitant]
     Active Substance: CLOZAPINE
     Indication: HALLUCINATION
     Route: 048
  2. DUODOPA [Suspect]
     Active Substance: CARBIDOPA\LEVODOPA
     Dosage: MD 6.8 CD 1.6 ED 1.5
     Route: 050
  3. DUODOPA [Suspect]
     Active Substance: CARBIDOPA\LEVODOPA
     Indication: PARKINSON^S DISEASE
     Dosage: MD: 6.3 ML, CD: 1.4 ML/HR, ED: 1.5 ML?16 HOUR ADMINISTRATION
     Route: 050
     Dates: start: 20170824
  4. IMPORTAL [Concomitant]
     Active Substance: LACTITOL
     Indication: ABNORMAL FAECES
     Route: 065

REACTIONS (19)
  - Posture abnormal [Not Recovered/Not Resolved]
  - Cerebral infarction [Recovered/Resolved]
  - Memory impairment [Not Recovered/Not Resolved]
  - General physical health deterioration [Not Recovered/Not Resolved]
  - Malaise [Not Recovered/Not Resolved]
  - Musculoskeletal stiffness [Not Recovered/Not Resolved]
  - Hyperaesthesia [Not Recovered/Not Resolved]
  - Freezing phenomenon [Not Recovered/Not Resolved]
  - Disturbance in attention [Not Recovered/Not Resolved]
  - Unevaluable event [Unknown]
  - Hallucination [Recovered/Resolved]
  - Mobility decreased [Not Recovered/Not Resolved]
  - Dyskinesia [Not Recovered/Not Resolved]
  - On and off phenomenon [Not Recovered/Not Resolved]
  - Bradykinesia [Not Recovered/Not Resolved]
  - Muscle rigidity [Unknown]
  - Hyperkinesia [Not Recovered/Not Resolved]
  - Muscle rigidity [Not Recovered/Not Resolved]
  - Hypoacusis [Not Recovered/Not Resolved]

NARRATIVE: CASE EVENT DATE: 20181214
